FAERS Safety Report 24545604 (Version 2)
Quarter: 2024Q4

REPORT INFORMATION
  Report Type: Spontaneous
  Country: US (occurrence: US)
  Receive Date: 20241024
  Receipt Date: 20241202
  Transmission Date: 20250114
  Serious: No
  Sender: PFIZER
  Company Number: US-PFIZER INC-202400284882

PATIENT
  Age: 52 Year
  Sex: Female
  Weight: 71.67 kg

DRUGS (1)
  1. FLAGYL [Suspect]
     Active Substance: METRONIDAZOLE\METRONIDAZOLE HYDROCHLORIDE
     Indication: Arthritis infective
     Dosage: 500 MG, 4X/DAY
     Route: 048

REACTIONS (1)
  - Drug ineffective [Unknown]
